FAERS Safety Report 4988708-0 (Version None)
Quarter: 2006Q2

REPORT INFORMATION
  Report Type: 
  Country: None (occurrence: None)
  Receive Date: 20060502
  Receipt Date: 20050930
  Transmission Date: 20061013
  Serious: Yes (Hospitalization, Disabling)
  Sender: FDA-Public Use
  Company Number: US-MERCK-0510USA01164

PATIENT
  Age: 54 Year
  Sex: Female
  Weight: 101 kg

DRUGS (6)
  1. VIOXX [Suspect]
     Indication: ARTHRITIS
     Route: 048
     Dates: start: 20000526, end: 20000528
  2. VIOXX [Suspect]
     Route: 048
     Dates: start: 20000608
  3. VIOXX [Suspect]
     Route: 048
     Dates: start: 20010409
  4. VIOXX [Suspect]
     Indication: MUSCLE STRAIN
     Route: 048
     Dates: start: 20000526, end: 20000528
  5. VIOXX [Suspect]
     Route: 048
     Dates: start: 20000608
  6. VIOXX [Suspect]
     Route: 048
     Dates: start: 20010409

REACTIONS (10)
  - ANXIETY [None]
  - AORTIC OCCLUSION [None]
  - CARDIOMYOPATHY [None]
  - CARDIOVASCULAR DISORDER [None]
  - CEREBROVASCULAR ACCIDENT [None]
  - DEPRESSION [None]
  - INJURY [None]
  - JOINT INJURY [None]
  - MYOCARDIAL INFARCTION [None]
  - PULMONARY EMBOLISM [None]
